FAERS Safety Report 9391785 (Version 2)
Quarter: 2013Q3

REPORT INFORMATION
  Report Type: Spontaneous
  Country: JP (occurrence: JP)
  Receive Date: 20130709
  Receipt Date: 20130812
  Transmission Date: 20140515
  Serious: Yes (Other)
  Sender: FDA-Public Use
  Company Number: PHHY2013JP072216

PATIENT
  Age: 76 Year
  Sex: Male

DRUGS (4)
  1. DIOVAN [Suspect]
     Indication: HYPERTENSION
     Dosage: 40 MG, DAILY
     Route: 048
  2. EXFORGE [Suspect]
     Indication: HYPERTENSION
     Dosage: 1 DF, DAILY
     Route: 048
  3. LANSOPRAZOLE OD [Suspect]
     Dosage: UNK UKN, UNK
     Route: 048
  4. CONIEL [Suspect]
     Dosage: 4 MG, DAILY
     Route: 048

REACTIONS (2)
  - Protein urine present [Unknown]
  - Malaise [Unknown]
